FAERS Safety Report 6503607-0 (Version None)
Quarter: 2009Q4

REPORT INFORMATION
  Report Type: 
  Country: None (occurrence: None)
  Receive Date: 20091217
  Receipt Date: 20091208
  Transmission Date: 20100525
  Serious: Yes (Death, Other)
  Sender: FDA-Public Use
  Company Number: ZA-ABBOTT-09P-143-0600188-00

PATIENT
  Sex: Male

DRUGS (4)
  1. LUCRIN DEPOT FOR INJECTION [Suspect]
     Indication: PROSTATE CANCER
     Route: 058
     Dates: start: 20060718, end: 20070430
  2. LUCRIN DEPOT FOR INJECTION [Suspect]
     Route: 058
     Dates: start: 20080416, end: 20080908
  3. LUCRIN DEPOT FOR INJECTION [Suspect]
     Route: 058
     Dates: start: 20090428
  4. FLIXOTIDE [Concomitant]
     Indication: DRUG USE FOR UNKNOWN INDICATION

REACTIONS (1)
  - PULMONARY EMBOLISM [None]
